FAERS Safety Report 20653749 (Version 1)
Quarter: 2022Q1

REPORT INFORMATION
  Report Type: Spontaneous
  Country: US (occurrence: None)
  Receive Date: 20220329
  Receipt Date: 20220329
  Transmission Date: 20220423
  Serious: No
  Sender: FDA-Public Use
  Company Number: None

PATIENT
  Age: 66 Year
  Sex: Female
  Weight: 73.6 kg

DRUGS (2)
  1. ADUCANUMAB [Suspect]
     Active Substance: ADUCANUMAB
     Indication: Dementia Alzheimer^s type
     Dosage: OTHER FREQUENCY : EVERY 4 WEEKS;?
     Route: 042
     Dates: start: 20220218
  2. ANIFROLUMAB [Suspect]
     Active Substance: ANIFROLUMAB

REACTIONS (2)
  - Wrong product administered [None]
  - Product name confusion [None]

NARRATIVE: CASE EVENT DATE: 20220318
